FAERS Safety Report 26055138 (Version 3)
Quarter: 2025Q4

REPORT INFORMATION
  Report Type: Report from Study
  Country: US (occurrence: US)
  Receive Date: 20251117
  Receipt Date: 20251202
  Transmission Date: 20260117
  Serious: Yes (Other)
  Sender: MALLINCKRODT
  Company Number: US-MALLINCKRODT-MNK202507161

PATIENT
  Age: 69 Year
  Sex: Male

DRUGS (7)
  1. CORTICOTROPIN [Suspect]
     Active Substance: CORTICOTROPIN
     Indication: Keratitis
     Route: 058
  2. CORTICOTROPIN [Suspect]
     Active Substance: CORTICOTROPIN
     Indication: Keratitis interstitial
  3. BELSOMRA [Concomitant]
     Active Substance: SUVOREXANT
     Dosage: UNKNWON
  4. ELIQUIS [Concomitant]
     Active Substance: APIXABAN
     Dosage: UNKNOWN
  5. CIALIS [Concomitant]
     Active Substance: TADALAFIL
     Dosage: UNKNOWN
  6. ACETAZOLAMIDE [Concomitant]
     Active Substance: ACETAZOLAMIDE
     Dosage: UNKNOWN
  7. RISPERDAL [Concomitant]
     Active Substance: RISPERIDONE
     Dosage: UNKNOWN

REACTIONS (6)
  - Thrombosis [Unknown]
  - Agitation [Not Recovered/Not Resolved]
  - Heart rate increased [Not Recovered/Not Resolved]
  - Infrequent bowel movements [Unknown]
  - Weight increased [Unknown]
  - Product dose omission issue [Unknown]
